FAERS Safety Report 4608414-1 (Version None)
Quarter: 2005Q1

REPORT INFORMATION
  Report Type: 
  Country: None (occurrence: None)
  Receive Date: 20050311
  Receipt Date: 20050311
  Transmission Date: 20050727
  Serious: Yes (Death)
  Sender: FDA-Public Use
  Company Number: None

PATIENT
  Age: 86 Year
  Sex: Female
  Weight: 56 kg

DRUGS (1)
  1. LOVENOX [Suspect]
     Indication: MYOCARDIAL INFARCTION
     Dosage: 60 MG SC Q 12 H
     Route: 058
     Dates: start: 20050202, end: 20050205

REACTIONS (4)
  - BLOOD PRESSURE INCREASED [None]
  - BRAIN DEATH [None]
  - CEREBRAL HAEMORRHAGE [None]
  - COMA [None]
